FAERS Safety Report 8461298-6 (Version None)
Quarter: 2012Q2

REPORT INFORMATION
  Report Type: 
  Country: None (occurrence: None)
  Receive Date: 20120619
  Receipt Date: 20120619
  Transmission Date: 20120825
  Serious: No
  Sender: FDA-Public Use
  Company Number: None

PATIENT
  Age: 32 Year
  Sex: Female

DRUGS (1)
  1. DANAZOL [Suspect]
     Indication: ANGIOEDEMA
     Dosage: 4 CAPSULES TWICE DAILY
     Dates: start: 20111218, end: 20120201

REACTIONS (6)
  - ALOPECIA [None]
  - ACNE [None]
  - WEIGHT INCREASED [None]
  - NERVOUSNESS [None]
  - TREMOR [None]
  - AGGRESSION [None]
